FAERS Safety Report 9562380 (Version 2)
Quarter: 2015Q3

REPORT INFORMATION
  Report Type: Spontaneous
  Country: CA (occurrence: CA)
  Receive Date: 20130927
  Receipt Date: 20150928
  Transmission Date: 20151125
  Serious: Yes (Other)
  Sender: FDA-Public Use
  Company Number: CA-MERCK-1309CAN012988

PATIENT
  Age: 25 Year
  Sex: Female
  Weight: 77.98 kg

DRUGS (1)
  1. MARVELON [Suspect]
     Active Substance: DESOGESTREL\ETHINYL ESTRADIOL
     Indication: CONTRACEPTION
     Dosage: 1 TABLET DAILY X 21 DAYS OFF 7
     Route: 048
     Dates: start: 201211, end: 20121216

REACTIONS (14)
  - Menstruation irregular [Recovering/Resolving]
  - Thrombosis [Recovering/Resolving]
  - Back pain [Recovering/Resolving]
  - Generalised erythema [Recovered/Resolved]
  - Neck pain [Recovering/Resolving]
  - Ear pruritus [Recovered/Resolved]
  - Throat irritation [Recovered/Resolved]
  - Dysmenorrhoea [Recovering/Resolving]
  - Capillary fragility [Recovered/Resolved]
  - Hypersensitivity [Recovering/Resolving]
  - Urticaria [Recovered/Resolved]
  - Anxiety [Recovering/Resolving]
  - Nasal congestion [Recovering/Resolving]
  - Musculoskeletal pain [Recovered/Resolved]

NARRATIVE: CASE EVENT DATE: 2012
